FAERS Safety Report 5621915-2 (Version None)
Quarter: 2008Q1

REPORT INFORMATION
  Report Type: 
  Country: None (occurrence: None)
  Receive Date: 20080206
  Receipt Date: 20080121
  Transmission Date: 20080703
  Serious: Yes (Death, Hospitalization)
  Sender: FDA-Public Use
  Company Number: TPG2007A00756

PATIENT
  Age: 68 Year
  Sex: Male

DRUGS (8)
  1. COMPETACT (PIOGLITAZONE HYDROCHLORIDE, METFORMIN HYDROCHLORIDE) [Suspect]
     Indication: DIABETES MELLITUS
     Dosage: 15 MG PIOGLITAZONE AND 850 MG METFORMIN PER ORAL
     Route: 048
     Dates: start: 20070703, end: 20071123
  2. ASPIRIN [Concomitant]
  3. OLMESARTAN MEDOXOMIL [Concomitant]
  4. ALDACTONE [Concomitant]
  5. PLAVIX [Concomitant]
  6. CONCOR (BISOPROLOL FUMARATE) [Concomitant]
  7. ZOCOR [Concomitant]
  8. LASIX [Concomitant]

REACTIONS (9)
  - ABDOMINAL INFECTION [None]
  - ACUTE RESPIRATORY DISTRESS SYNDROME [None]
  - CARDIAC FAILURE [None]
  - HAEMODYNAMIC INSTABILITY [None]
  - PNEUMONIA [None]
  - PULMONARY SEPSIS [None]
  - RENAL FAILURE [None]
  - RENAL FAILURE ACUTE [None]
  - SEPTIC SHOCK [None]
